FAERS Safety Report 17553526 (Version 1)
Quarter: 2020Q1

REPORT INFORMATION
  Report Type: Spontaneous
  Country: US (occurrence: US)
  Receive Date: 20200317
  Receipt Date: 20200317
  Transmission Date: 20200409
  Serious: No
  Sender: FDA-Public Use
  Company Number: US-VERTEX PHARMACEUTICALS-2020-006085

PATIENT
  Sex: Female
  Weight: 45 kg

DRUGS (24)
  1. SYMDEKO [Suspect]
     Active Substance: IVACAFTOR\TEZACAFTOR
     Indication: CYSTIC FIBROSIS
     Dosage: 1 DOSAGE FORM, BID
     Route: 048
     Dates: start: 20180920, end: 2019
  2. DORNASE ALFA. [Concomitant]
     Active Substance: DORNASE ALFA
     Indication: CYSTIC FIBROSIS
     Dosage: 2.5 MILLIGRAM DAILY
     Dates: start: 20000912
  3. MIRTAZAPINE. [Concomitant]
     Active Substance: MIRTAZAPINE
     Indication: DECREASED APPETITE
  4. ZANTAC [Concomitant]
     Active Substance: RANITIDINE HYDROCHLORIDE
     Indication: VOMITING
  5. TOBI PODHALER [Concomitant]
     Active Substance: TOBRAMYCIN
     Indication: CYSTIC FIBROSIS
     Dosage: 4 DOSAGE FORM, BID
     Route: 055
     Dates: start: 20190913, end: 20200121
  6. AZTREONAM. [Concomitant]
     Active Substance: AZTREONAM
     Indication: BACTERIAL DISEASE CARRIER
     Dosage: 75MD, TID, CYCLING PRIOR TO PREGNANCY,NOT DURING PREGNANCY
     Dates: start: 20110913
  7. MIRALAX [Concomitant]
     Active Substance: POLYETHYLENE GLYCOL 3350
     Indication: CONSTIPATION
     Dosage: 17 GRAM, PO, DAILY
     Route: 048
  8. SODIUM CHLORIDE. [Concomitant]
     Active Substance: SODIUM CHLORIDE
     Dosage: 4 MILLILITER, BID SODIUM CHLORIDE 3%
     Dates: start: 20110111
  9. ONDANSETRON [Concomitant]
     Active Substance: ONDANSETRON
     Indication: NAUSEA
     Dosage: 4 MG, PQ8H PRN
     Route: 048
     Dates: start: 20190131
  10. CITALOPRAM [Concomitant]
     Active Substance: CITALOPRAM HYDROBROMIDE
     Indication: DEPRESSION
     Dosage: 10 MILLIGRAM, PO DAILY
     Route: 048
  11. PANTOPRAZOLE [Concomitant]
     Active Substance: PANTOPRAZOLE
     Indication: GASTROOESOPHAGEAL REFLUX DISEASE
     Dosage: 40 MG, BID
     Route: 048
     Dates: start: 20191205
  12. LANSOPRAZOLE. [Concomitant]
     Active Substance: LANSOPRAZOLE
     Indication: GASTROOESOPHAGEAL REFLUX DISEASE
     Dosage: 15 MILLIGRAM, BID
     Dates: start: 20120821
  13. SODIUM CHLORIDE. [Concomitant]
     Active Substance: SODIUM CHLORIDE
     Indication: OBSTRUCTIVE AIRWAYS DISORDER
     Dosage: 4 MILLILITER, BID SODIUM CHLORIDE 7%
     Dates: start: 20110111
  14. ALBUTEROL [SALBUTAMOL] [Concomitant]
     Active Substance: ALBUTEROL
     Indication: OBSTRUCTIVE AIRWAYS DISORDER
     Dosage: 0.63 MG, TID PRN
     Dates: start: 20060214
  15. ONDANSETRON [Concomitant]
     Active Substance: ONDANSETRON
     Indication: VOMITING
  16. AZITHROMYCIN ANHYDROUS. [Concomitant]
     Active Substance: AZITHROMYCIN ANHYDROUS
     Indication: CYSTIC FIBROSIS
     Dosage: 500 MG, MWF
     Route: 048
     Dates: start: 20180730
  17. INSULIN LISPRO [Concomitant]
     Active Substance: INSULIN LISPRO
     Indication: CYSTIC FIBROSIS RELATED DIABETES
     Dosage: SLIDING SCALE-INJECT UPTO 20 UNITS DAILY
     Route: 051
  18. ALBUTEROL [SALBUTAMOL] [Concomitant]
     Active Substance: ALBUTEROL
     Indication: RESPIRATORY DISORDER
  19. MIRTAZAPINE. [Concomitant]
     Active Substance: MIRTAZAPINE
     Indication: DEPRESSION
     Dosage: 30 MILLIGRAM, QD
     Route: 048
     Dates: start: 20180730
  20. TOBRAMYCIN. [Concomitant]
     Active Substance: TOBRAMYCIN
     Indication: BACTERIAL DISEASE CARRIER
     Dosage: 300 MILLIGRAM, BID, CYCLED 28 DAYS ON, 28 DAYS OFF
     Dates: start: 19991123, end: 20181218
  21. ZANTAC [Concomitant]
     Active Substance: RANITIDINE HYDROCHLORIDE
     Indication: NAUSEA
     Dosage: 150 MG, BID
     Route: 048
     Dates: start: 20190131
  22. CITALOPRAM [Concomitant]
     Active Substance: CITALOPRAM HYDROBROMIDE
     Indication: ANXIETY
  23. QVAR [Concomitant]
     Active Substance: BECLOMETHASONE DIPROPIONATE
     Indication: ASTHMA
     Dosage: 80 MICROGRAM PER ACTUATION, 2 PUFS INHALED BID
     Dates: start: 20100608
  24. CREON [Concomitant]
     Active Substance: PANCRELIPASE AMYLASE\PANCRELIPASE LIPASE\PANCRELIPASE PROTEASE
     Indication: PANCREATIC FAILURE
     Dosage: 4-4 CAPSULES WITH MEALS, 2-3 CAPSIULES WITH SNACKS
     Route: 048

REACTIONS (1)
  - Hepatic enzyme increased [Recovered/Resolved]

NARRATIVE: CASE EVENT DATE: 2019
